FAERS Safety Report 5610043-8 (Version None)
Quarter: 2008Q1

REPORT INFORMATION
  Report Type: 
  Country: None (occurrence: None)
  Receive Date: 20080131
  Receipt Date: 20071219
  Transmission Date: 20080703
  Serious: No
  Sender: FDA-Public Use
  Company Number: US-BAYER-200716961NA

PATIENT
  Age: 33 Year
  Sex: Female
  Weight: 77 kg

DRUGS (8)
  1. YAZ [Suspect]
     Indication: CONTRACEPTION
     Route: 048
  2. LAMICTAL [Concomitant]
     Dosage: TOTAL DAILY DOSE: 250 MG
  3. EFFEXOR XR [Concomitant]
     Dosage: TOTAL DAILY DOSE: 225 MG
  4. INDERAL [Concomitant]
  5. ACIPHEX [Concomitant]
  6. XANAX [Concomitant]
  7. NAPROXEN [Concomitant]
     Dosage: TOTAL DAILY DOSE: 2000 MG
  8. AMBIEN CR [Concomitant]
     Dosage: TOTAL DAILY DOSE: 20 MG

REACTIONS (1)
  - AMENORRHOEA [None]
